FAERS Safety Report 6675947-6 (Version None)
Quarter: 2010Q2

REPORT INFORMATION
  Report Type: 
  Country: None (occurrence: None)
  Receive Date: 20100412
  Receipt Date: 20100402
  Transmission Date: 20101027
  Serious: No
  Sender: FDA-Public Use
  Company Number: US-BIOGENIDEC-2010BI011299

PATIENT
  Age: 30 Year
  Sex: Male

DRUGS (1)
  1. TYSABRI [Suspect]
     Indication: MULTIPLE SCLEROSIS
     Route: 042
     Dates: start: 20091223

REACTIONS (6)
  - ACNE [None]
  - HYPERAESTHESIA [None]
  - INGROWN HAIR [None]
  - NASOPHARYNGITIS [None]
  - SINUS HEADACHE [None]
  - SINUSITIS [None]
